FAERS Safety Report 16956409 (Version 1)
Quarter: 2019Q4

REPORT INFORMATION
  Report Type: Spontaneous
  Country: CN (occurrence: CN)
  Receive Date: 20191024
  Receipt Date: 20191024
  Transmission Date: 20200122
  Serious: Yes (Other)
  Sender: FDA-Public Use
  Company Number: CN-PFIZER INC-2019459147

PATIENT
  Age: 32 Year
  Sex: Female

DRUGS (3)
  1. SOLU-MEDROL [Suspect]
     Active Substance: METHYLPREDNISOLONE SODIUM SUCCINATE
     Indication: JOINT RANGE OF MOTION DECREASED
     Dosage: UNK
     Dates: start: 20190523
  2. MYCOPHENOLATE MOFETIL. [Suspect]
     Active Substance: MYCOPHENOLATE MOFETIL
     Indication: JOINT RANGE OF MOTION DECREASED
     Dosage: UNK
     Dates: start: 20190523
  3. TACROLIMUS. [Suspect]
     Active Substance: TACROLIMUS
     Indication: JOINT RANGE OF MOTION DECREASED
     Dosage: UNK
     Dates: start: 20190523

REACTIONS (3)
  - Weight decreased [Unknown]
  - Hypomenorrhoea [Unknown]
  - Polymenorrhoea [Unknown]

NARRATIVE: CASE EVENT DATE: 2019
